FAERS Safety Report 9391845 (Version 2)
Quarter: 2013Q3

REPORT INFORMATION
  Report Type: Spontaneous
  Country: US (occurrence: US)
  Receive Date: 20130709
  Receipt Date: 20130812
  Transmission Date: 20140515
  Serious: No
  Sender: FDA-Public Use
  Company Number: US-009507513-1306USA005957

PATIENT
  Sex: Female

DRUGS (6)
  1. CLARITIN-D-12 [Suspect]
     Indication: HYPERSENSITIVITY
     Dosage: 5 MG, QD
     Route: 048
  2. CLARITIN-D-12 [Suspect]
     Indication: SINUS HEADACHE
  3. CLARITIN-D-12 [Suspect]
     Indication: NASOPHARYNGITIS
  4. CLARITIN-D-12 [Suspect]
     Indication: MEDICAL OBSERVATION
  5. VITAMIN D (UNSPECIFIED) [Concomitant]
     Indication: PRODUCT USED FOR UNKNOWN INDICATION
     Dosage: UNK, UNKNOWN
  6. CENTRUM SILVER [Concomitant]
     Indication: PRODUCT USED FOR UNKNOWN INDICATION
     Dosage: UNK, UNKNOWN

REACTIONS (5)
  - Disturbance in attention [Recovered/Resolved]
  - Insomnia [Recovered/Resolved]
  - Poor quality sleep [Recovered/Resolved]
  - Dry mouth [Unknown]
  - Underdose [Unknown]
